FAERS Safety Report 4987006-9 (Version None)
Quarter: 2006Q2

REPORT INFORMATION
  Report Type: 
  Country: None (occurrence: None)
  Receive Date: 20060427
  Receipt Date: 20060427
  Transmission Date: 20061013
  Serious: Yes (Hospitalization)
  Sender: FDA-Public Use
  Company Number: None

PATIENT
  Age: 76 Year
  Sex: Male

DRUGS (2)
  1. GEMCITABINE [Suspect]
     Indication: NEOPLASM MALIGNANT
     Dosage: UNKNOWN IV
     Route: 042
     Dates: start: 20050922, end: 20050922
  2. PEMETREXED [Suspect]
     Dosage: UNKNOWN
     Dates: start: 20050922, end: 20050922

REACTIONS (5)
  - LETHARGY [None]
  - ODYNOPHAGIA [None]
  - RASH [None]
  - SKIN HYPERPIGMENTATION [None]
  - STOMATITIS [None]
